FAERS Safety Report 8303357-4 (Version None)
Quarter: 2012Q2

REPORT INFORMATION
  Report Type: 
  Country: None (occurrence: None)
  Receive Date: 20120423
  Receipt Date: 20120411
  Transmission Date: 20120825
  Serious: No
  Sender: FDA-Public Use
  Company Number: US-BIOGENIDEC-2011BI035442

PATIENT
  Age: 58 Year
  Sex: Female

DRUGS (4)
  1. IBUPROFEN [Concomitant]
     Indication: PREMEDICATION
  2. AVONEX [Suspect]
     Indication: MULTIPLE SCLEROSIS
     Route: 030
     Dates: start: 20110412
  3. MELOXICAM [Concomitant]
     Indication: PREMEDICATION
  4. OXYCONTIN [Concomitant]
     Indication: ARTHRALGIA
     Dates: start: 20000101

REACTIONS (14)
  - ABDOMINAL PAIN UPPER [None]
  - HYPOAESTHESIA [None]
  - SPEECH DISORDER [None]
  - HEADACHE [None]
  - FATIGUE [None]
  - MUSCLE SPASMS [None]
  - ANXIETY [None]
  - HYPERTENSION [None]
  - EXOSTOSIS [None]
  - SODIUM RETENTION [None]
  - DEPRESSED MOOD [None]
  - MENISCUS LESION [None]
  - SOMNOLENCE [None]
  - NAUSEA [None]
